FAERS Safety Report 14127058 (Version 2)
Quarter: 2017Q4

REPORT INFORMATION
  Report Type: Spontaneous
  Country: AE (occurrence: AE)
  Receive Date: 20171026
  Receipt Date: 20171215
  Transmission Date: 20180321
  Serious: Yes (Other)
  Sender: FDA-Public Use
  Company Number: AE-ROCHE-2012751

PATIENT
  Sex: Male
  Weight: 80 kg

DRUGS (3)
  1. XOLAIR [Suspect]
     Active Substance: OMALIZUMAB
     Indication: ASTHMA
     Route: 058
     Dates: start: 20161205
  2. ALOE VERA [Concomitant]
     Active Substance: ALOE VERA LEAF
     Indication: WEIGHT INCREASED
     Dosage: UNK
     Route: 065
  3. SINGULAIR [Concomitant]
     Active Substance: MONTELUKAST SODIUM
     Indication: PRODUCT USED FOR UNKNOWN INDICATION
     Route: 065

REACTIONS (4)
  - Hepatic fibrosis [Unknown]
  - Renal colic [Unknown]
  - Weight increased [Unknown]
  - Hepatic enzyme increased [Unknown]
